FAERS Safety Report 11118043 (Version 1)
Quarter: 2015Q2

REPORT INFORMATION
  Report Type: Spontaneous
  Country: US (occurrence: None)
  Receive Date: 20150514
  Receipt Date: 20150514
  Transmission Date: 20150821
  Serious: Yes (Other)
  Sender: FDA-Public Use
  Company Number: 1599078

PATIENT
  Age: 37 Year
  Sex: Male

DRUGS (1)
  1. TAMOXIFEN [Suspect]
     Active Substance: TAMOXIFEN
     Indication: ANAPLASTIC ASTROCYTOMA

REACTIONS (5)
  - Visual acuity reduced [None]
  - Maculopathy [None]
  - Metamorphopsia [None]
  - Off label use [None]
  - Cystoid macular oedema [None]
